FAERS Safety Report 10020990 (Version 4)
Quarter: 2014Q2

REPORT INFORMATION
  Report Type: Report from Study
  Country: US (occurrence: US)
  Receive Date: 20140319
  Receipt Date: 20140623
  Transmission Date: 20141212
  Serious: Yes (Hospitalization)
  Sender: FDA-Public Use
  Company Number: US-JNJFOC-20140308958

PATIENT
  Age: 16 Year
  Sex: Male
  Weight: 72.2 kg

DRUGS (11)
  1. REMICADE [Suspect]
     Indication: CROHN^S DISEASE
     Route: 042
     Dates: start: 20111001, end: 20130705
  2. HUMIRA [Concomitant]
     Route: 065
     Dates: start: 20130705
  3. ROCEPHIN [Concomitant]
     Route: 065
  4. CALCIUM [Concomitant]
     Route: 065
  5. PERIACTIN [Concomitant]
     Route: 065
  6. FOLIC ACID [Concomitant]
     Route: 065
  7. OMEPRAZOLE [Concomitant]
     Route: 065
  8. 5-ASA [Concomitant]
     Route: 048
  9. POTASSIUM CHLORIDE [Concomitant]
     Route: 065
  10. PREDNISONE [Concomitant]
     Route: 065
  11. PROBIOTICS [Concomitant]
     Route: 065

REACTIONS (2)
  - Anaemia of chronic disease [Recovered/Resolved]
  - Crohn^s disease [Recovered/Resolved]
